FAERS Safety Report 12876578 (Version 4)
Quarter: 2016Q4

REPORT INFORMATION
  Report Type: Report from Study
  Country: US (occurrence: US)
  Receive Date: 20161024
  Receipt Date: 20161227
  Transmission Date: 20170207
  Serious: Yes (Other)
  Sender: FDA-Public Use
  Company Number: US-JNJFOC-20161011088

PATIENT
  Sex: Female
  Weight: 58.33 kg

DRUGS (16)
  1. POTASSIUM CHLORIDE. [Concomitant]
     Active Substance: POTASSIUM CHLORIDE
     Route: 048
     Dates: start: 20160315
  2. LISINOPRIL. [Concomitant]
     Active Substance: LISINOPRIL
     Route: 048
     Dates: start: 20160315
  3. ZOMIG [Concomitant]
     Active Substance: ZOLMITRIPTAN
     Route: 065
  4. SIMPONI [Suspect]
     Active Substance: GOLIMUMAB
     Indication: RHEUMATOID ARTHRITIS
     Route: 058
     Dates: start: 20160811
  5. SINEMET [Concomitant]
     Active Substance: CARBIDOPA\LEVODOPA
     Route: 048
     Dates: start: 20160315
  6. ZANAFLEX [Concomitant]
     Active Substance: TIZANIDINE HYDROCHLORIDE
     Route: 065
     Dates: start: 20160315
  7. HYDROMORPHONE [Concomitant]
     Active Substance: HYDROMORPHONE
     Dosage: EVERY 4-6 HOURS AS NEEDED
     Route: 048
     Dates: start: 20160517
  8. PROTONIX [Concomitant]
     Active Substance: PANTOPRAZOLE SODIUM
     Route: 048
     Dates: start: 20160315
  9. VITAMINE [Concomitant]
     Route: 065
  10. BONIVA [Concomitant]
     Active Substance: IBANDRONATE SODIUM
     Route: 048
     Dates: start: 20160315
  11. IMITREX [Concomitant]
     Active Substance: SUMATRIPTAN SUCCINATE
     Dosage: 1 TABLET WITH FLUIDS, MAY REPEAT AFTER 2 HOURS IF HEADACHE RETURNS, NOT TO EXCEED 200 MG IN 24 HOURS
     Route: 048
     Dates: start: 20160212
  12. MOBIC [Concomitant]
     Active Substance: MELOXICAM
     Route: 048
     Dates: start: 20160315
  13. HYDROCODONE/ACETAMINOPHEN [Concomitant]
     Active Substance: ACETAMINOPHEN\HYDROCODONE
     Route: 048
     Dates: start: 20160708
  14. FOLIC ACID. [Concomitant]
     Active Substance: FOLIC ACID
     Route: 048
     Dates: start: 20160406
  15. PATANOL [Concomitant]
     Active Substance: OLOPATADINE HYDROCHLORIDE
     Route: 047
     Dates: start: 20160315
  16. ZINC [Concomitant]
     Active Substance: ZINC\ZINC CHLORIDE
     Route: 048
     Dates: start: 20160315

REACTIONS (14)
  - Drug ineffective [Unknown]
  - Palpitations [Unknown]
  - Increased tendency to bruise [Unknown]
  - Haemorrhagic diathesis [Unknown]
  - Psoriatic arthropathy [Unknown]
  - Rheumatoid arthritis [Unknown]
  - Headache [Unknown]
  - Sjogren^s syndrome [Unknown]
  - Fatigue [Unknown]
  - Dry eye [Unknown]
  - Gastrooesophageal reflux disease [Unknown]
  - Paraesthesia [Unknown]
  - Psoriasis [Unknown]
  - Rash [Unknown]
